FAERS Safety Report 4839429-6 (Version None)
Quarter: 2005Q4

REPORT INFORMATION
  Report Type: 
  Country: None (occurrence: None)
  Receive Date: 20051129
  Receipt Date: 20040616
  Transmission Date: 20060501
  Serious: No
  Sender: FDA-Public Use
  Company Number: US-GLAXOSMITHKLINE-A0514867A

PATIENT
  Age: 24 Year
  Sex: Female

DRUGS (4)
  1. WELLBUTRIN SR [Suspect]
     Indication: DEPRESSION
     Dosage: 200MG TWICE PER DAY
     Route: 048
  2. CYTOMEL [Concomitant]
  3. LEVOXYL [Concomitant]
  4. ACCUTANE [Concomitant]

REACTIONS (10)
  - ACNE [None]
  - CHILLS [None]
  - DRUG WITHDRAWAL SYNDROME [None]
  - FEELING ABNORMAL [None]
  - INFLUENZA LIKE ILLNESS [None]
  - INSOMNIA [None]
  - LACRIMATION INCREASED [None]
  - MENTAL IMPAIRMENT [None]
  - NASOPHARYNGITIS [None]
  - RHINORRHOEA [None]
